FAERS Safety Report 7326481-1 (Version None)
Quarter: 2011Q1

REPORT INFORMATION
  Report Type: 
  Country: None (occurrence: None)
  Receive Date: 20110302
  Receipt Date: 20110218
  Transmission Date: 20110831
  Serious: Yes (Other)
  Sender: FDA-Public Use
  Company Number: NL-ELI_LILLY_AND_COMPANY-NL201102005363

PATIENT
  Sex: Female
  Weight: 80 kg

DRUGS (2)
  1. CISPLATIN [Suspect]
     Indication: NON-SMALL CELL LUNG CANCER
     Dosage: 270 MG, EVERY THREE WEEKS
     Route: 042
     Dates: start: 20110110
  2. PEMETREXED [Suspect]
     Indication: NON-SMALL CELL LUNG CANCER
     Dosage: 1850 MG, EVERY THREE WEEKS
     Route: 042
     Dates: start: 20110110

REACTIONS (1)
  - DEEP VEIN THROMBOSIS [None]
